FAERS Safety Report 7123544-0 (Version None)
Quarter: 2010Q4

REPORT INFORMATION
  Report Type: 
  Country: None (occurrence: None)
  Receive Date: 20101125
  Receipt Date: 20101119
  Transmission Date: 20110411
  Serious: Yes (Life-Threatening)
  Sender: FDA-Public Use
  Company Number: IT-PFIZER INC-2010154314

PATIENT
  Age: 83 Year
  Sex: Male

DRUGS (2)
  1. ZYVOX [Suspect]
     Indication: STAPHYLOCOCCAL SEPSIS
     Dosage: 2 MG/ML, UNK
     Route: 042
     Dates: start: 20101109, end: 20101114
  2. COLIMICIN [Concomitant]
     Dosage: 1000000 IU, UNK
     Route: 030

REACTIONS (4)
  - CONJUNCTIVAL HAEMORRHAGE [None]
  - HAEMATURIA [None]
  - HELLP SYNDROME [None]
  - PETECHIAE [None]
